FAERS Safety Report 25136119 (Version 5)
Quarter: 2025Q2

REPORT INFORMATION
  Report Type: Report from Study
  Country: US (occurrence: US)
  Receive Date: 20250328
  Receipt Date: 20250430
  Transmission Date: 20250717
  Serious: No
  Sender: BIOVITRUM
  Company Number: US-BIOVITRUM-2025-US-004257

PATIENT
  Age: 54 Year
  Sex: Female

DRUGS (1)
  1. KINERET [Suspect]
     Active Substance: ANAKINRA
     Indication: Rheumatoid arthritis
     Route: 058
     Dates: start: 20241113

REACTIONS (12)
  - Injection site pruritus [Unknown]
  - Injection site swelling [Unknown]
  - Injection site urticaria [Unknown]
  - Injection site erythema [Unknown]
  - Injection site pain [Unknown]
  - Illness [Unknown]
  - Drug hypersensitivity [Unknown]
  - Food allergy [Unknown]
  - Product dose omission issue [Unknown]
  - Drug ineffective [Unknown]
  - Product use issue [Not Recovered/Not Resolved]
  - Product distribution issue [Unknown]

NARRATIVE: CASE EVENT DATE: 20250410
